FAERS Safety Report 9247954 (Version 1)
Quarter: 2013Q1

REPORT INFORMATION
  Report Type: Spontaneous
  Country: US (occurrence: None)
  Receive Date: 20130305
  Receipt Date: 20130305
  Transmission Date: 20140127
  Serious: Yes (Other)
  Sender: FDA-Public Use
  Company Number: 163-21880-12092120

PATIENT
  Sex: Female
  Weight: 68.04 kg

DRUGS (10)
  1. REVLIMID [Suspect]
     Route: 048
     Dates: start: 201208
  2. ZOMETA (ZOLEDRONIC ACID) [Concomitant]
  3. VELCADE (BORTEZOMIB) [Concomitant]
  4. LOSARTAN (LOSARTAN) [Concomitant]
  5. FERROUS SULFATE (FERROUS SULFATE) [Concomitant]
  6. TYLENOL (PARACETAMOL) [Concomitant]
  7. ASA (ACETYLSALICYLIC ACID) [Concomitant]
  8. CALTRATE (CALCIUM CARBONATE) [Concomitant]
  9. NEULASTA (PEGFILGRASTIM) [Concomitant]
  10. B COMPLEX VITAMINS [Concomitant]

REACTIONS (2)
  - White blood cell count decreased [None]
  - Red blood cell count decreased [None]
